FAERS Safety Report 15925907 (Version 4)
Quarter: 2019Q2

REPORT INFORMATION
  Report Type: Spontaneous
  Country: FR (occurrence: FR)
  Receive Date: 20190206
  Receipt Date: 20190410
  Transmission Date: 20190711
  Serious: Yes (Death, Other)
  Sender: FDA-Public Use
  Company Number: FR-AUROBINDO-AUR-APL-2019-006189

PATIENT

DRUGS (8)
  1. PANTOPRAZOLE [Suspect]
     Active Substance: PANTOPRAZOLE
     Indication: HYPERCHLORHYDRIA
     Dosage: 20 MILLIGRAM, DAILY, 20 MG, CYCLIC (DRUG INTERVAL:1 DAY)
     Route: 048
     Dates: start: 2015
  2. ATORVASTATINE PFIZER [Suspect]
     Active Substance: ATORVASTATIN
     Indication: CEREBROVASCULAR ACCIDENT
     Dosage: 40 MILLIGRAM, CYCLICAL
     Route: 048
     Dates: start: 20181106
  3. ELIQUIS [Suspect]
     Active Substance: APIXABAN
     Indication: CEREBROVASCULAR ACCIDENT PROPHYLAXIS
  4. ZOPICLONE [Concomitant]
     Active Substance: ZOPICLONE
     Indication: PRODUCT USED FOR UNKNOWN INDICATION
     Dosage: 7.5 MILLIGRAM, UNK (0-0-0-0.5)
     Route: 065
  5. ELIQUIS [Suspect]
     Active Substance: APIXABAN
     Indication: ATRIAL FIBRILLATION
     Dosage: 5 MILLIGRAM, DAILY, 5 MG, CYCLIC (DRUG INTERVAL: 1 DAY)
     Route: 048
     Dates: start: 20181106
  6. AMLODIPINE CAPSULE, HARD [Suspect]
     Active Substance: AMLODIPINE BESYLATE
     Indication: CEREBROVASCULAR ACCIDENT
     Dosage: 10 MILLIGRAM, DAILY, 10 MG, CYCLIC (DRUG INTERVAL: 1 DAY)
     Route: 048
     Dates: start: 20181029
  7. ESIDREX [Suspect]
     Active Substance: HYDROCHLOROTHIAZIDE
     Indication: HYPERTENSION
     Dosage: 25 MILLIGRAM, CYCLICAL (DRUG INTERVAL: 1 DAY)
     Route: 048
     Dates: start: 20170601
  8. RAMIPRIL. [Suspect]
     Active Substance: RAMIPRIL
     Indication: HYPERTENSION
     Dosage: 5 MILLIGRAM, DAILY, 5 MG, CYCLIC  (DRUG INTERVAL: 1 DAY)
     Route: 048
     Dates: start: 20161201

REACTIONS (2)
  - Pancreatitis acute [Fatal]
  - Abdominal pain [Fatal]

NARRATIVE: CASE EVENT DATE: 20181127
